FAERS Safety Report 23226709 (Version 2)
Quarter: 2023Q4

REPORT INFORMATION
  Report Type: Spontaneous
  Country: GB (occurrence: GB)
  Receive Date: 20231124
  Receipt Date: 20231215
  Transmission Date: 20240109
  Serious: Yes (Other)
  Sender: FDA-Public Use
  Company Number: GB-MHRA-TPP2182732C10408146YC1699464782393

PATIENT
  Age: 33 Year
  Sex: Male
  Weight: 78 kg

DRUGS (3)
  1. SERTRALINE [Suspect]
     Active Substance: SERTRALINE HYDROCHLORIDE
     Indication: Ill-defined disorder
     Dosage: 50 MILIGRAM
     Route: 065
     Dates: start: 20230920, end: 20231018
  2. SERTRALINE [Suspect]
     Active Substance: SERTRALINE HYDROCHLORIDE
     Dosage: UNK
     Route: 065
     Dates: start: 20231108
  3. INFLIXIMAB [Concomitant]
     Active Substance: INFLIXIMAB
     Indication: Ill-defined disorder
     Dosage: HOSPITAL PRESCRIPTION. NOT TO BE PRESCRIBED BY GP
     Route: 065
     Dates: start: 20191003

REACTIONS (2)
  - Dizziness [Recovered/Resolved]
  - Nausea [Recovered/Resolved]

NARRATIVE: CASE EVENT DATE: 20231019
